FAERS Safety Report 6033322-1 (Version None)
Quarter: 2009Q1

REPORT INFORMATION
  Report Type: 
  Country: None (occurrence: None)
  Receive Date: 20090109
  Receipt Date: 20081229
  Transmission Date: 20090719
  Serious: Yes (Other)
  Sender: FDA-Public Use
  Company Number: GB-PFIZER INC-2009150366

PATIENT

DRUGS (2)
  1. BLINDED *PLACEBO [Suspect]
     Indication: COLORECTAL CANCER METASTATIC
     Route: 048
  2. BLINDED SUNITINIB MALATE [Suspect]
     Indication: COLORECTAL CANCER METASTATIC
     Route: 048

REACTIONS (1)
  - MEMORY IMPAIRMENT [None]
